FAERS Safety Report 6253706-6 (Version None)
Quarter: 2009Q2

REPORT INFORMATION
  Report Type: 
  Country: None (occurrence: None)
  Receive Date: 20090630
  Receipt Date: 20090623
  Transmission Date: 20091009
  Serious: Yes (Hospitalization)
  Sender: FDA-Public Use
  Company Number: 2009SP012355

PATIENT
  Age: 79 Year
  Sex: Female
  Weight: 55.4 kg

DRUGS (1)
  1. TEMODAR [Suspect]
     Indication: ACUTE MYELOID LEUKAEMIA
     Dosage: 200 MG/M2; QD; PO
     Route: 048
     Dates: start: 20090529, end: 20090604

REACTIONS (10)
  - BLOOD PRESSURE SYSTOLIC INCREASED [None]
  - COLITIS [None]
  - COUGH [None]
  - ECCHYMOSIS [None]
  - FEBRILE NEUTROPENIA [None]
  - GASTROINTESTINAL HAEMORRHAGE [None]
  - LUNG DISORDER [None]
  - PANCYTOPENIA [None]
  - PERFORMANCE STATUS DECREASED [None]
  - PLATELET COUNT DECREASED [None]
